FAERS Safety Report 8473123-8 (Version None)
Quarter: 2012Q2

REPORT INFORMATION
  Report Type: 
  Country: None (occurrence: None)
  Receive Date: 20120627
  Receipt Date: 20120618
  Transmission Date: 20120825
  Serious: Yes (Hospitalization)
  Sender: FDA-Public Use
  Company Number: IT-TEVA-344264ISR

PATIENT
  Age: 80 Year
  Sex: Female

DRUGS (9)
  1. METFORMIN HCL [Concomitant]
     Route: 065
  2. TIMOLOL MALEATE [Concomitant]
     Route: 065
  3. GLICLAZIDE [Concomitant]
     Route: 065
  4. TICLOPIDINE HCL [Suspect]
     Indication: ARTERIAL STENOSIS
     Dosage: 250 MG/DAY
     Route: 065
     Dates: end: 20110201
  5. AMLODIPINE [Concomitant]
     Indication: HYPERTENSION
     Dosage: 5 MG/DAY
     Route: 065
  6. SIMVASTATIN [Concomitant]
     Route: 065
  7. PAROXETINE [Concomitant]
     Route: 065
  8. ATENOLOL AND CHLORTHALIDONE [Concomitant]
     Indication: HYPERTENSION
     Dosage: 100 AND 25 MG/DAY ATENOLOL/CHLORTALIDONE
     Route: 065
  9. LORAZEPAM [Concomitant]
     Route: 065

REACTIONS (1)
  - SYSTOLIC HYPERTENSION [None]
